FAERS Safety Report 24029528 (Version 3)
Quarter: 2024Q4

REPORT INFORMATION
  Report Type: Report from Study
  Country: CA (occurrence: CA)
  Receive Date: 20240628
  Receipt Date: 20241010
  Transmission Date: 20250114
  Serious: Yes (Other)
  Sender: TAKEDA
  Company Number: CA-TAKEDA-2022TUS036406

PATIENT
  Age: 58 Year
  Sex: Female

DRUGS (14)
  1. VEDOLIZUMAB [Suspect]
     Active Substance: VEDOLIZUMAB
     Indication: Colitis
     Dosage: 300 MILLIGRAM
     Route: 042
     Dates: start: 20220503
  2. VEDOLIZUMAB [Suspect]
     Active Substance: VEDOLIZUMAB
     Dosage: 300 MILLIGRAM
     Route: 042
  3. VEDOLIZUMAB [Suspect]
     Active Substance: VEDOLIZUMAB
     Dosage: 300 MILLIGRAM
     Route: 042
  4. VEDOLIZUMAB [Suspect]
     Active Substance: VEDOLIZUMAB
     Dosage: 300 MILLIGRAM
     Route: 042
  5. VEDOLIZUMAB [Suspect]
     Active Substance: VEDOLIZUMAB
     Dosage: 300 MILLIGRAM
     Route: 042
  6. VEDOLIZUMAB [Suspect]
     Active Substance: VEDOLIZUMAB
     Dosage: 300 MILLIGRAM, Q4WEEKS
     Route: 042
     Dates: start: 20241003
  7. Salofalk [Concomitant]
     Dosage: UNK
     Dates: start: 2012
  8. DEXLANSOPRAZOLE [Concomitant]
     Active Substance: DEXLANSOPRAZOLE
     Dosage: UNK
     Dates: start: 2020
  9. CYANOCOBALAMIN\FOLIC ACID [Concomitant]
     Active Substance: CYANOCOBALAMIN\FOLIC ACID
     Dosage: 1000 MILLIGRAM
     Route: 048
  10. OMEGA 3 [Concomitant]
     Active Substance: CAPSAICIN
     Dosage: UNK
     Route: 048
  11. VITAMIN D3 [Concomitant]
     Active Substance: CHOLECALCIFEROL
     Dosage: 75 MILLIGRAM
     Route: 048
  12. BIOTIN [Concomitant]
     Active Substance: BIOTIN
     Dosage: 10000 MICROGRAM
     Route: 048
  13. ZINC [Concomitant]
     Active Substance: ZINC
     Dosage: UNK
     Route: 048
  14. MAGNESIUM [Concomitant]
     Active Substance: MAGNESIUM
     Dosage: 400 MILLIGRAM
     Route: 048

REACTIONS (15)
  - Haematochezia [Unknown]
  - Diarrhoea [Unknown]
  - Constipation [Unknown]
  - Rash [Not Recovered/Not Resolved]
  - Defaecation urgency [Unknown]
  - Bowel movement irregularity [Unknown]
  - Faeces hard [Unknown]
  - Rash pruritic [Unknown]
  - Alopecia [Unknown]
  - Off label use [Unknown]
  - Loss of therapeutic response [Unknown]
  - Hiatus hernia [Unknown]
  - Large intestine polyp [Unknown]
  - Gastrointestinal scarring [Unknown]
  - Arthralgia [Unknown]

NARRATIVE: CASE EVENT DATE: 20220503
